FAERS Safety Report 8993016 (Version 2)
Quarter: 2013Q1

REPORT INFORMATION
  Report Type: Spontaneous
  Country: GB (occurrence: GB)
  Receive Date: 20130102
  Receipt Date: 20130208
  Transmission Date: 20140127
  Serious: Yes (Hospitalization, Other)
  Sender: FDA-Public Use
  Company Number: GB-JNJFOC-20121211660

PATIENT
  Age: 16 Year
  Sex: Female

DRUGS (74)
  1. DOXORUBICIN [Suspect]
     Indication: CHEMOTHERAPY
     Route: 042
     Dates: start: 20121017, end: 20121018
  2. DOXORUBICIN [Suspect]
     Indication: CHEMOTHERAPY
     Route: 042
     Dates: start: 20120922, end: 20120923
  3. DOXORUBICIN [Suspect]
     Indication: CHEMOTHERAPY
     Route: 042
     Dates: start: 20121017, end: 20121018
  4. DOXORUBICIN [Suspect]
     Indication: CHEMOTHERAPY
     Route: 042
     Dates: start: 20120922, end: 20120923
  5. PLACEBO [Suspect]
     Indication: PROPHYLAXIS OF NAUSEA AND VOMITING
     Dosage: ON DAY ONE, 60 MINUTES PRIOR CHEMOTHERAPY??CYCLE 1 SEQUENCE 1
     Route: 048
     Dates: start: 20120921, end: 20120921
  6. PLACEBO [Suspect]
     Indication: PROPHYLAXIS OF NAUSEA AND VOMITING
     Dosage: ON MORNING OF DAY 2 AND DAY 3??CYCLE 1 SEQUENCE 2
     Route: 048
     Dates: start: 20120922, end: 20120922
  7. PLACEBO [Suspect]
     Indication: PROPHYLAXIS OF NAUSEA AND VOMITING
     Dosage: CYCLE 1 SEQUENCE 3
     Route: 048
     Dates: start: 20120923, end: 20120923
  8. PLACEBO [Suspect]
     Indication: PROPHYLAXIS OF NAUSEA AND VOMITING
     Dosage: CYCLE 2 SEQUENCE 1
     Route: 048
     Dates: start: 20120923, end: 20120923
  9. PLACEBO [Suspect]
     Indication: PROPHYLAXIS OF NAUSEA AND VOMITING
     Dosage: CYCLE 1 SEQUENCE 1
     Route: 048
     Dates: start: 20121017, end: 20121017
  10. PLACEBO [Suspect]
     Indication: PROPHYLAXIS OF NAUSEA AND VOMITING
     Dosage: CYCLE 2 SEQUENCE 1
     Route: 048
     Dates: start: 20121019, end: 20121019
  11. PLACEBO [Suspect]
     Indication: PROPHYLAXIS OF NAUSEA AND VOMITING
     Dosage: CYCLE 2 SEQUENCE 1
     Route: 048
     Dates: start: 20121018, end: 20121018
  12. PLACEBO [Suspect]
     Indication: PROPHYLAXIS OF NAUSEA AND VOMITING
     Dosage: CYCLE 4 SEQUENCE 1
     Route: 048
     Dates: start: 20121129, end: 20121129
  13. PLACEBO [Suspect]
     Indication: PROPHYLAXIS OF NAUSEA AND VOMITING
     Dosage: CYCLE 3 SEQUENCE 2
     Route: 048
     Dates: start: 20121108, end: 20121108
  14. PLACEBO [Suspect]
     Indication: PROPHYLAXIS OF NAUSEA AND VOMITING
     Dosage: CYCLE 3 SEQUENCE 1
     Route: 048
     Dates: start: 20121107, end: 20121107
  15. PLACEBO [Suspect]
     Indication: PROPHYLAXIS OF NAUSEA AND VOMITING
     Dosage: CYCLE 4 SEQUENCE 1
     Route: 048
     Dates: start: 20121128, end: 20121128
  16. PLACEBO [Suspect]
     Indication: PROPHYLAXIS OF NAUSEA AND VOMITING
     Dosage: CYCLE 2 SEQUENCE 1
     Route: 048
     Dates: start: 20121109, end: 20121109
  17. ONDANSETRON [Suspect]
     Indication: PROPHYLAXIS OF NAUSEA AND VOMITING
     Dosage: P.R.N
     Route: 042
     Dates: start: 20121007, end: 20121007
  18. ONDANSETRON [Suspect]
     Indication: PROPHYLAXIS OF NAUSEA AND VOMITING
     Dosage: ONCE
     Route: 042
     Dates: start: 20120924, end: 20120924
  19. ONDANSETRON [Suspect]
     Indication: PROPHYLAXIS OF NAUSEA AND VOMITING
     Dosage: PM; 30 MINUTES PRIOR TO CHEMOTHERAPY
     Route: 042
     Dates: start: 20120921, end: 20120924
  20. ONDANSETRON [Suspect]
     Indication: PROPHYLAXIS OF NAUSEA AND VOMITING
     Route: 065
     Dates: start: 20120926, end: 20120927
  21. ONDANSETRON [Suspect]
     Indication: PROPHYLAXIS OF NAUSEA AND VOMITING
     Dosage: CYCLE 2 SEQUENCE 1
     Route: 065
     Dates: start: 20121019, end: 20121019
  22. ONDANSETRON [Suspect]
     Indication: PROPHYLAXIS OF NAUSEA AND VOMITING
     Dosage: CYCLE 2 SEQUENCE 1
     Route: 065
     Dates: start: 20121018, end: 20121018
  23. ONDANSETRON [Suspect]
     Indication: PROPHYLAXIS OF NAUSEA AND VOMITING
     Route: 065
     Dates: start: 20121017, end: 20121017
  24. ONDANSETRON [Suspect]
     Indication: PROPHYLAXIS OF NAUSEA AND VOMITING
     Dosage: ONCE
     Route: 065
     Dates: start: 20120924, end: 20120924
  25. ONDANSETRON [Suspect]
     Indication: PROPHYLAXIS OF NAUSEA AND VOMITING
     Dosage: P.R.N
     Route: 065
     Dates: start: 20120925, end: 20120925
  26. ONDANSETRON [Suspect]
     Indication: PROPHYLAXIS OF NAUSEA AND VOMITING
     Route: 065
     Dates: start: 20120927, end: 20120927
  27. DEXAMETHASONE [Suspect]
     Indication: PROPHYLAXIS OF NAUSEA AND VOMITING
     Route: 042
     Dates: start: 20120923, end: 20120923
  28. DEXAMETHASONE [Suspect]
     Indication: PROPHYLAXIS OF NAUSEA AND VOMITING
     Route: 042
     Dates: start: 20120924, end: 20120924
  29. DEXAMETHASONE [Suspect]
     Indication: PROPHYLAXIS OF NAUSEA AND VOMITING
     Route: 042
     Dates: start: 20120922, end: 20120922
  30. DEXAMETHASONE [Suspect]
     Indication: PROPHYLAXIS OF NAUSEA AND VOMITING
     Route: 042
     Dates: start: 20120921, end: 20120921
  31. IFOSFAMIDE [Suspect]
     Indication: NEOPLASM MALIGNANT
     Route: 042
     Dates: start: 20120921, end: 20120923
  32. IFOSFAMIDE [Suspect]
     Indication: NEOPLASM MALIGNANT
     Route: 042
     Dates: start: 20121017, end: 20121019
  33. IFOSFAMIDE [Suspect]
     Indication: CHEMOTHERAPY
     Route: 042
     Dates: start: 20120921, end: 20120923
  34. IFOSFAMIDE [Suspect]
     Indication: CHEMOTHERAPY
     Route: 042
     Dates: start: 20121017, end: 20121019
  35. APREPITANT [Suspect]
     Indication: PROPHYLAXIS OF NAUSEA AND VOMITING
     Dosage: CYCLE 1 SEQUENCE 3
     Route: 048
     Dates: start: 20120923, end: 20120923
  36. APREPITANT [Suspect]
     Indication: PROPHYLAXIS OF NAUSEA AND VOMITING
     Dosage: ON MORNING OF DAY 2 AND DAY 3??CYCLE 1 SEQUENCE 2
     Route: 048
     Dates: start: 20120922, end: 20120922
  37. APREPITANT [Suspect]
     Indication: PROPHYLAXIS OF NAUSEA AND VOMITING
     Dosage: ON DAY ONE, 60 MINUTES PRIOR CHEMOTHERAPY??CYCLE 1 SEQUENCE 1
     Route: 048
     Dates: start: 20120921, end: 20120921
  38. APREPITANT [Suspect]
     Indication: PROPHYLAXIS OF NAUSEA AND VOMITING
     Dosage: CYCLE 2 SEQUENCE 1
     Route: 048
     Dates: start: 20120923, end: 20120923
  39. APREPITANT [Suspect]
     Indication: PROPHYLAXIS OF NAUSEA AND VOMITING
     Dosage: CYCLE 1 SEQUENCE 1
     Route: 048
     Dates: start: 20121017, end: 20121017
  40. APREPITANT [Suspect]
     Indication: PROPHYLAXIS OF NAUSEA AND VOMITING
     Dosage: CYCLE 4 SEQUENCE 1
     Route: 048
     Dates: start: 20121129, end: 20121129
  41. APREPITANT [Suspect]
     Indication: PROPHYLAXIS OF NAUSEA AND VOMITING
     Dosage: CYCLE 4 SEQUENCE 1
     Route: 048
     Dates: start: 20121128, end: 20121128
  42. APREPITANT [Suspect]
     Indication: PROPHYLAXIS OF NAUSEA AND VOMITING
     Dosage: CYCLE 2 SEQUENCE 1
     Route: 048
     Dates: start: 20121109, end: 20121109
  43. APREPITANT [Suspect]
     Indication: PROPHYLAXIS OF NAUSEA AND VOMITING
     Dosage: CYCLE 3 SEQUENCE 2
     Route: 048
     Dates: start: 20121108, end: 20121108
  44. APREPITANT [Suspect]
     Indication: PROPHYLAXIS OF NAUSEA AND VOMITING
     Dosage: CYCLE 3 SEQUENCE 1
     Route: 048
     Dates: start: 20121107, end: 20121107
  45. APREPITANT [Suspect]
     Indication: PROPHYLAXIS OF NAUSEA AND VOMITING
     Dosage: CYCLE 2 SEQUENCE 1
     Route: 048
     Dates: start: 20121018, end: 20121018
  46. APREPITANT [Suspect]
     Indication: PROPHYLAXIS OF NAUSEA AND VOMITING
     Dosage: CYCLE 2 SEQUENCE 1
     Route: 048
     Dates: start: 20121019, end: 20121019
  47. NORETHINDRONE [Concomitant]
     Indication: MENSTRUAL DISORDER
     Route: 048
     Dates: start: 20120903
  48. CODEINE PHOSPHATE [Concomitant]
     Indication: ANALGESIC THERAPY
     Route: 048
     Dates: start: 20120830
  49. CODEINE PHOSPHATE [Concomitant]
     Indication: ANALGESIC THERAPY
     Route: 048
     Dates: start: 20121005, end: 20121005
  50. MACROGOL [Concomitant]
     Indication: CONSTIPATION
     Route: 048
     Dates: start: 20120830, end: 201209
  51. HEPARIN [Concomitant]
     Route: 042
     Dates: start: 20120914
  52. MESNA [Concomitant]
     Indication: PROPHYLAXIS
     Route: 042
     Dates: start: 20121017, end: 20121019
  53. MESNA [Concomitant]
     Indication: PROPHYLAXIS
     Route: 042
     Dates: start: 20120921, end: 20120924
  54. CYCLIZINE [Concomitant]
     Indication: ANTIEMETIC SUPPORTIVE CARE
     Route: 048
     Dates: start: 20121017, end: 20121017
  55. CYCLIZINE [Concomitant]
     Indication: ANTIEMETIC SUPPORTIVE CARE
     Route: 048
     Dates: start: 20120923, end: 20120923
  56. HEPARIN [Concomitant]
     Indication: ANTICOAGULANT THERAPY
     Route: 042
     Dates: start: 20120914
  57. TRANSFER FACTOR [Concomitant]
     Route: 065
     Dates: start: 201209
  58. UNKNOWN MEDICATION [Concomitant]
     Route: 065
     Dates: start: 201209
  59. MESNA [Concomitant]
     Route: 065
     Dates: start: 20121017, end: 20121019
  60. CODEINE [Concomitant]
     Indication: ANALGESIC THERAPY
     Route: 048
     Dates: start: 20121005, end: 20121005
  61. AMOXICILLIN W/CLAVULANATE POTASSIUM [Concomitant]
     Indication: MUCOSAL INFLAMMATION
     Route: 048
     Dates: start: 20121030, end: 201211
  62. AMOXICILLIN W/CLAVULANATE POTASSIUM [Concomitant]
     Indication: INFECTION
     Route: 048
     Dates: start: 20121030, end: 201211
  63. PARACETAMOL [Concomitant]
     Indication: ANALGESIC THERAPY
     Route: 048
     Dates: start: 20121005, end: 20121006
  64. CIPROFLOXACIN [Concomitant]
     Indication: MUCOSAL INFLAMMATION
     Route: 048
     Dates: start: 20121030, end: 201211
  65. CIPROFLOXACIN [Concomitant]
     Indication: INFECTION
     Route: 048
     Dates: start: 20121030, end: 201211
  66. FENTANYL [Concomitant]
     Indication: PAIN
     Route: 065
     Dates: start: 20121030
  67. OXYCODONE [Concomitant]
     Indication: PAIN
     Dosage: DOSE 40 (UNSPECIFIED UNITS), ONE TIME DOSE
     Route: 042
     Dates: start: 20121030, end: 20121030
  68. OXYCODONE [Concomitant]
     Indication: PAIN
     Route: 048
     Dates: start: 20121122, end: 20121201
  69. BUSCOPAN [Concomitant]
     Route: 065
     Dates: start: 20121005, end: 20121008
  70. CALCIUM CARBONATE [Concomitant]
     Route: 065
     Dates: start: 20121005, end: 20121009
  71. HYPROMELLOSE [Concomitant]
     Route: 047
     Dates: start: 20121019
  72. TEICOPLANIN [Concomitant]
     Indication: DEVICE RELATED INFECTION
     Route: 042
     Dates: start: 20120915, end: 20120920
  73. RED BLOOD CELLS [Concomitant]
     Indication: HAEMOGLOBIN DECREASED
     Route: 042
     Dates: start: 20120924, end: 20120924
  74. ANESTHETIC [Concomitant]
     Indication: ANAESTHESIA
     Route: 061
     Dates: start: 20121006, end: 20121016

REACTIONS (8)
  - Febrile neutropenia [Recovered/Resolved]
  - Periorbital cellulitis [Recovered/Resolved]
  - Medical device complication [Recovered/Resolved]
  - Constipation [Recovered/Resolved]
  - Haemoglobin decreased [Not Recovered/Not Resolved]
  - Diarrhoea [Recovered/Resolved]
  - Vena cava thrombosis [Not Recovered/Not Resolved]
  - Medical device complication [Unknown]
